FAERS Safety Report 8807970 (Version 2)
Quarter: 2014Q3

REPORT INFORMATION
  Report Type: Report from Study
  Country: US (occurrence: US)
  Receive Date: 20120925
  Receipt Date: 20140826
  Transmission Date: 20150326
  Serious: Yes (Death, Other)
  Sender: FDA-Public Use
  Company Number: US-ROCHE-1101893

PATIENT
  Sex: Male

DRUGS (4)
  1. AVASTIN [Suspect]
     Active Substance: BEVACIZUMAB
     Indication: ANAEMIA
  2. PEMETREXED DISODIUM [Concomitant]
     Active Substance: PEMETREXED DISODIUM
     Route: 065
     Dates: end: 201002
  3. ALIMTA [Concomitant]
     Active Substance: PEMETREXED DISODIUM
  4. AVASTIN [Suspect]
     Active Substance: BEVACIZUMAB
     Indication: BLADDER CANCER
     Route: 042
     Dates: end: 201002

REACTIONS (3)
  - Off label use [Unknown]
  - Metastases to prostate [Unknown]
  - Disease progression [Fatal]
